FAERS Safety Report 5933619-7 (Version None)
Quarter: 2008Q4

REPORT INFORMATION
  Report Type: 
  Country: None (occurrence: None)
  Receive Date: 20081024
  Receipt Date: 20081010
  Transmission Date: 20090506
  Serious: Yes (Hospitalization)
  Sender: FDA-Public Use
  Company Number: 2008S1018570

PATIENT
  Age: 75 Year
  Sex: Female

DRUGS (6)
  1. AMOXICILLIN [Suspect]
     Indication: DRUG USE FOR UNKNOWN INDICATION
     Dosage: 500 MG; 3 TIMES A DAY; ORAL
     Route: 048
     Dates: start: 20080902, end: 20080916
  2. CLARITHROMYCIN [Suspect]
     Indication: DRUG USE FOR UNKNOWN INDICATION
     Dosage: 500 MG; TWICE A DAY; ORAL
     Route: 048
     Dates: start: 20080902, end: 20080916
  3. OMEPRAZOLE [Suspect]
     Indication: DYSPEPSIA
     Dosage: 40 MG; DAILY; ORAL
     Route: 048
     Dates: start: 20080902, end: 20080916
  4. SIMVASTATIN [Suspect]
     Indication: HYPERLIPIDAEMIA
     Dosage: 40  MG; ORAL
     Route: 048
     Dates: start: 20080902, end: 20080916
  5. ASPIRIN [Concomitant]
  6. QUININE [Concomitant]

REACTIONS (2)
  - MUSCLE NECROSIS [None]
  - RHABDOMYOLYSIS [None]
